FAERS Safety Report 18376017 (Version 2)
Quarter: 2020Q4

REPORT INFORMATION
  Report Type: Spontaneous
  Country: US (occurrence: US)
  Receive Date: 20201013
  Receipt Date: 20201201
  Transmission Date: 20210114
  Serious: Yes (Other)
  Sender: FDA-Public Use
  Company Number: US-LUPIN PHARMACEUTICALS INC.-2020-07129

PATIENT
  Sex: Female

DRUGS (13)
  1. HYDROCORTISONE. [Suspect]
     Active Substance: HYDROCORTISONE
     Dosage: 1.2 MILLIGRAM, TID,SUSPENSION
     Route: 048
  2. HYDROCORTISONE. [Suspect]
     Active Substance: HYDROCORTISONE
     Dosage: 4.35 MILLIGRAM/SQ. METER,TABLET DISSOLVED IN WATER
     Route: 048
  3. HYDROCORTISONE. [Suspect]
     Active Substance: HYDROCORTISONE
     Dosage: 5.8 MILLIGRAM/SQ. METER,TABLET DISSOLVED IN WATER
     Route: 048
  4. HYDROCORTISONE. [Suspect]
     Active Substance: HYDROCORTISONE
     Dosage: 7.1 MILLIGRAM/SQ. METER,TABLET DISSOLVED IN WATER
     Route: 048
  5. HYDROCORTISONE. [Suspect]
     Active Substance: HYDROCORTISONE
     Dosage: 6.6 MILLIGRAM/SQ. METER, QD,AT THE AGE OF 12 MONTHS; TABLET DISSOLVED IN WATER
     Route: 048
  6. HYDROCORTISONE. [Suspect]
     Active Substance: HYDROCORTISONE
     Indication: ADRENOGENITAL SYNDROME
     Dosage: 1 DOSAGE FORM (1 TABLET DISSOLVED IN 5ML WATER)
     Route: 048
  7. HYDROCORTISONE. [Suspect]
     Active Substance: HYDROCORTISONE
     Dosage: 10 MILLIGRAM (10 MG DISSOLVED IN 10ML WATER)
     Route: 048
  8. HYDROCORTISONE. [Suspect]
     Active Substance: HYDROCORTISONE
     Dosage: 1.3 MILLIGRAM, TID,SUSPENSION
     Route: 048
  9. HYDROCORTISONE. [Suspect]
     Active Substance: HYDROCORTISONE
     Dosage: 12.2 MILLIGRAM/SQ. METER,TABLET DISSOLVED IN WATER
     Route: 048
  10. FLUDROCORTISONE [Concomitant]
     Active Substance: FLUDROCORTISONE
     Indication: ADRENOGENITAL SYNDROME
     Dosage: 0.1 MILLIGRAM, QD
     Route: 065
  11. SODIUM CHLORIDE. [Concomitant]
     Active Substance: SODIUM CHLORIDE
     Indication: ADRENOGENITAL SYNDROME
     Dosage: 10.2 MILLIEQUIVALENT PER KILOGRAM, QD
  12. HYDROCORTISONE. [Suspect]
     Active Substance: HYDROCORTISONE
     Dosage: 8.1 MILLIGRAM/SQ. METER,TABLET DISSOLVED IN WATER
     Route: 048
  13. FLUDROCORTISONE [Concomitant]
     Active Substance: FLUDROCORTISONE
     Dosage: 0.05 MILLIGRAM, QD
     Route: 065

REACTIONS (4)
  - Cushing^s syndrome [Recovered/Resolved]
  - Hypothalamic pituitary adrenal axis suppression [Recovered/Resolved]
  - Intentional product misuse [Unknown]
  - Product administration error [Unknown]
